FAERS Safety Report 7515545-5 (Version None)
Quarter: 2011Q2

REPORT INFORMATION
  Report Type: 
  Country: None (occurrence: None)
  Receive Date: 20110601
  Receipt Date: 20100708
  Transmission Date: 20111010
  Serious: Yes (Death, Other)
  Sender: FDA-Public Use
  Company Number: US-PFIZER INC-2010060944

PATIENT
  Sex: Male

DRUGS (9)
  1. LANTUS [Concomitant]
     Indication: DIABETES MELLITUS
     Dosage: UNK
     Dates: start: 20090101, end: 20090430
  2. METFORMIN [Concomitant]
     Indication: DIABETES MELLITUS
     Dosage: UNK
     Dates: start: 20090106, end: 20090301
  3. CHANTIX [Suspect]
     Dosage: 1 MG, UNK
     Dates: start: 20090126, end: 20090226
  4. METHIMAZOLE [Concomitant]
     Indication: THYROID DISORDER
     Dosage: UNK
     Dates: start: 20090101, end: 20090430
  5. METOPROLOL [Concomitant]
     Indication: CARDIAC DISORDER
     Dosage: UNK
     Dates: start: 20090101, end: 20090430
  6. NOVOLOG [Concomitant]
     Indication: DIABETES MELLITUS
     Dosage: UNK
     Dates: start: 20090101, end: 20090430
  7. CHANTIX [Suspect]
     Indication: SMOKING CESSATION THERAPY
     Dosage: 0.5 MG, UNK
     Dates: start: 20090126, end: 20090226
  8. WARFARIN [Concomitant]
     Indication: CARDIAC DISORDER
     Dosage: UNK
     Dates: start: 20090101, end: 20090430
  9. RISPERIDONE [Concomitant]
     Indication: DEPRESSION
     Dosage: UNK
     Dates: start: 20011201, end: 20090430

REACTIONS (4)
  - DEPRESSION [None]
  - MENTAL STATUS CHANGES [None]
  - HALLUCINATION [None]
  - COMPLETED SUICIDE [None]
